FAERS Safety Report 17363480 (Version 1)
Quarter: 2020Q1

REPORT INFORMATION
  Report Type: Spontaneous
  Country: US (occurrence: US)
  Receive Date: 20200203
  Receipt Date: 20200203
  Transmission Date: 20200409
  Serious: No
  Sender: FDA-Public Use
  Company Number: US-JUBILANT CADISTA PHARMACEUTICALS-2019JUB00272

PATIENT
  Age: 61 Year
  Sex: Male
  Weight: 77.1 kg

DRUGS (6)
  1. ATORVASTATIN [Concomitant]
     Active Substance: ATORVASTATIN
     Dosage: 40 MG, 1X/DAY AT NIGHT
  2. FINASTERIDE. [Concomitant]
     Active Substance: FINASTERIDE
  3. FISH OIL [Concomitant]
     Active Substance: FISH OIL
  4. COQ10 [Concomitant]
     Active Substance: UBIDECARENONE
  5. UNSPECIFIED INSULIN [Concomitant]
     Active Substance: INSULIN NOS
     Dosage: UNK, 1X/DAY AT ABOUT 3:00 PM
  6. TERAZOSIN [Suspect]
     Active Substance: TERAZOSIN HYDROCHLORIDE
     Indication: BLOOD POTASSIUM DECREASED
     Dosage: 2 MG, 1X/DAY IN THE EVENING
     Route: 048
     Dates: start: 20190327, end: 20190329

REACTIONS (2)
  - Burning sensation [Recovered/Resolved]
  - Off label use [Recovered/Resolved]

NARRATIVE: CASE EVENT DATE: 20190327
